FAERS Safety Report 4445167-4 (Version None)
Quarter: 2004Q3

REPORT INFORMATION
  Report Type: 
  Country: None (occurrence: None)
  Receive Date: 20040903
  Receipt Date: 20040823
  Transmission Date: 20050211
  Serious: Yes (Death)
  Sender: FDA-Public Use
  Company Number: USA-2004-0016513

PATIENT
  Age: 41 Year
  Sex: Male

DRUGS (4)
  1. MORPHINE SULFATE [Suspect]
  2. CODEINE (CODEINE) [Suspect]
  3. DEXTROMETHORPHAN (DEXTROMETHORPHAN) [Suspect]
  4. DOXYLAMINE (DOXYLAMINE) [Suspect]

REACTIONS (8)
  - ACCIDENT [None]
  - ARTERIOSCLEROSIS [None]
  - DRUG TOXICITY [None]
  - LARYNGOTRACHEO BRONCHITIS [None]
  - MULTI-ORGAN DISORDER [None]
  - MULTIPLE DRUG OVERDOSE ACCIDENTAL [None]
  - PNEUMONIA [None]
  - PULMONARY OEDEMA [None]
